FAERS Safety Report 6909028-0 (Version None)
Quarter: 2010Q3

REPORT INFORMATION
  Report Type: 
  Country: None (occurrence: None)
  Receive Date: 20100708
  Receipt Date: 20090501
  Transmission Date: 20110219
  Serious: Yes (Other)
  Sender: FDA-Public Use
  Company Number: 2007082908

PATIENT
  Age: 52 Year
  Sex: Female
  Weight: 64.9 kg

DRUGS (3)
  1. CHANTIX [Suspect]
     Indication: SMOKING CESSATION THERAPY
     Dosage: EVERY DAY, ORAL
     Route: 048
     Dates: start: 20070601
  2. ZESTRIL [Suspect]
     Indication: BLOOD PRESSURE ABNORMAL
  3. LISINOPRIL [Suspect]

REACTIONS (5)
  - ANGER [None]
  - FEAR [None]
  - HEART RATE INCREASED [None]
  - NIGHTMARE [None]
  - PSYCHOTIC DISORDER [None]
